FAERS Safety Report 6555509-1 (Version None)
Quarter: 2010Q1

REPORT INFORMATION
  Report Type: 
  Country: None (occurrence: None)
  Receive Date: 20100128
  Receipt Date: 20100121
  Transmission Date: 20100710
  Serious: Yes (Other)
  Sender: FDA-Public Use
  Company Number: CA-ROCHE-681197

PATIENT
  Sex: Male

DRUGS (3)
  1. PEGASYS [Suspect]
     Indication: HEPATITIS C
     Route: 058
     Dates: start: 20081024
  2. RIBAVIRIN [Suspect]
     Indication: HEPATITIS C
     Route: 048
     Dates: start: 20081024
  3. PREVACID [Concomitant]
     Dates: start: 20080101

REACTIONS (6)
  - ABDOMINAL PAIN UPPER [None]
  - ANAEMIA [None]
  - DYSPEPSIA [None]
  - DYSPNOEA [None]
  - HYPOKALAEMIA [None]
  - THROMBOCYTOPENIA [None]
